FAERS Safety Report 10142943 (Version 2)
Quarter: 2014Q2

REPORT INFORMATION
  Report Type: Spontaneous
  Country: US (occurrence: US)
  Receive Date: 20140430
  Receipt Date: 20140623
  Transmission Date: 20141212
  Serious: Yes (Hospitalization)
  Sender: FDA-Public Use
  Company Number: US-BAYER-2014-062925

PATIENT
  Age: 37 Year
  Sex: Female
  Weight: 72.56 kg

DRUGS (4)
  1. YAZ [Suspect]
     Indication: ACNE
     Dosage: UNK
     Dates: start: 2001, end: 2013
  2. YAZ [Suspect]
     Indication: CONTRACEPTION
     Dosage: UNK
     Dates: start: 1999, end: 2000
  3. YASMIN [Suspect]
     Dosage: UNK
     Dates: start: 2003, end: 2013
  4. MUPIROCIN [Concomitant]
     Dosage: 2 %, UNK
     Dates: start: 20130511

REACTIONS (5)
  - Deep vein thrombosis [None]
  - Thrombosis [None]
  - Injury [None]
  - Pain [None]
  - Pain [None]
